FAERS Safety Report 24749266 (Version 1)
Quarter: 2024Q4

REPORT INFORMATION
  Report Type: Spontaneous
  Country: US (occurrence: US)
  Receive Date: 20241218
  Receipt Date: 20241218
  Transmission Date: 20250115
  Serious: No
  Sender: ALEXION PHARMACEUTICALS
  Company Number: US-AstraZeneca-CH-00770736A

PATIENT
  Age: 51 Year

DRUGS (8)
  1. TRUQAP [Suspect]
     Active Substance: CAPIVASERTIB
     Route: 065
  2. TRUQAP [Suspect]
     Active Substance: CAPIVASERTIB
     Route: 065
  3. TRUQAP [Suspect]
     Active Substance: CAPIVASERTIB
     Route: 065
  4. TRUQAP [Suspect]
     Active Substance: CAPIVASERTIB
     Route: 065
  5. FASLODEX [Suspect]
     Active Substance: FULVESTRANT
     Route: 065
  6. FASLODEX [Suspect]
     Active Substance: FULVESTRANT
     Route: 065
  7. FASLODEX [Suspect]
     Active Substance: FULVESTRANT
     Route: 065
  8. FASLODEX [Suspect]
     Active Substance: FULVESTRANT
     Route: 065

REACTIONS (4)
  - Diarrhoea [Not Recovered/Not Resolved]
  - Weight decreased [Not Recovered/Not Resolved]
  - Decreased appetite [Not Recovered/Not Resolved]
  - Abdominal pain upper [Not Recovered/Not Resolved]
